FAERS Safety Report 9693519 (Version 2)
Quarter: 2013Q4

REPORT INFORMATION
  Report Type: Spontaneous
  Country: DE (occurrence: DE)
  Receive Date: 20131118
  Receipt Date: 20131226
  Transmission Date: 20140711
  Serious: Yes (Other)
  Sender: FDA-Public Use
  Company Number: DE-TEVA-444580USA

PATIENT
  Sex: Female
  Weight: 62 kg

DRUGS (3)
  1. BENDAMUSTINE [Suspect]
     Indication: CHRONIC LYMPHOCYTIC LEUKAEMIA
     Dosage: UNKNOWN/D
     Route: 042
     Dates: start: 20130211, end: 20130211
  2. BENDAMUSTINE [Suspect]
     Dosage: UNKNOWN/D
     Route: 042
     Dates: start: 20130212, end: 20130212
  3. RITUXIMAB [Suspect]
     Indication: CHRONIC LYMPHOCYTIC LEUKAEMIA
     Dosage: UNKNOWN/D
     Route: 042
     Dates: start: 20130206

REACTIONS (1)
  - Pancytopenia [Recovered/Resolved]
